FAERS Safety Report 11030525 (Version 3)
Quarter: 2015Q2

REPORT INFORMATION
  Report Type: Spontaneous
  Country: US (occurrence: US)
  Receive Date: 20150415
  Receipt Date: 20150526
  Transmission Date: 20150821
  Serious: Yes (Hospitalization)
  Sender: FDA-Public Use
  Company Number: US-PFIZER INC-2015104667

PATIENT
  Age: 70 Year
  Sex: Female

DRUGS (6)
  1. ALPRAZOLAM. [Concomitant]
     Active Substance: ALPRAZOLAM
  2. DEPAKOTE [Concomitant]
     Active Substance: DIVALPROEX SODIUM
  3. XANAX [Concomitant]
     Active Substance: ALPRAZOLAM
  4. SUTENT [Suspect]
     Active Substance: SUNITINIB MALATE
     Indication: RENAL CELL CARCINOMA
     Dosage: 37.5 MG, (DAILY X 4 WEEKS)
     Dates: start: 20150327
  5. HYDROCODONE [Concomitant]
     Active Substance: HYDROCODONE
     Dosage: UNK, AS NEEDED
  6. MORPHINE [Concomitant]
     Active Substance: MORPHINE
     Dosage: UNK UNK, AS NEEDED

REACTIONS (8)
  - Pain [Unknown]
  - Ascites [Unknown]
  - Hypertension [Unknown]
  - Vomiting [Unknown]
  - Dysphagia [Unknown]
  - Nausea [Unknown]
  - Peripheral swelling [Unknown]
  - Abdominal distension [Unknown]
